FAERS Safety Report 9080770 (Version 1)
Quarter: 2013Q1

REPORT INFORMATION
  Report Type: Report from Study
  Country: US (occurrence: US)
  Receive Date: 20130130
  Receipt Date: 20130130
  Transmission Date: 20140127
  Serious: No
  Sender: FDA-Public Use
  Company Number: US-ABBOTT-12P-163-0976304-00

PATIENT
  Age: 38 Year
  Sex: Female

DRUGS (8)
  1. HUMIRA [Suspect]
     Indication: PSORIATIC ARTHROPATHY
     Dates: start: 20120816
  2. AVARA [Concomitant]
     Indication: PSORIATIC ARTHROPATHY
     Dosage: EVERY DAY
  3. PREDNISONE [Concomitant]
     Indication: SWELLING
  4. PREDNISONE [Concomitant]
     Indication: PSORIATIC ARTHROPATHY
  5. OMEGA 3 [Concomitant]
     Indication: PRODUCT USED FOR UNKNOWN INDICATION
     Dosage: DAILY
  6. VITAMIN D [Concomitant]
     Indication: PRODUCT USED FOR UNKNOWN INDICATION
     Dosage: DAILY
  7. BYETTA [Concomitant]
     Indication: POLYCYSTIC OVARIES
  8. GLUMETZA [Concomitant]
     Indication: POLYCYSTIC OVARIES

REACTIONS (1)
  - Injection site pain [Recovered/Resolved]
